FAERS Safety Report 6686039-4 (Version None)
Quarter: 2010Q2

REPORT INFORMATION
  Report Type: 
  Country: None (occurrence: None)
  Receive Date: 20100414
  Receipt Date: 20100331
  Transmission Date: 20101027
  Serious: Yes (Hospitalization)
  Sender: FDA-Public Use
  Company Number: 2010SP001014

PATIENT
  Age: 83 Year
  Sex: Male

DRUGS (2)
  1. BROVANA [Suspect]
     Indication: BRONCHITIS CHRONIC
     Dosage: 15 UG/2ML;BID;INHALATION
     Route: 055
  2. BUDESONIDE [Concomitant]

REACTIONS (3)
  - BRONCHITIS CHRONIC [None]
  - CONDITION AGGRAVATED [None]
  - PNEUMONIA [None]
